FAERS Safety Report 8216641-X (Version None)
Quarter: 2012Q1

REPORT INFORMATION
  Report Type: 
  Country: None (occurrence: None)
  Receive Date: 20120316
  Receipt Date: 20120303
  Transmission Date: 20120608
  Serious: Yes (Other)
  Sender: FDA-Public Use
  Company Number: CHPA2012US004909

PATIENT
  Sex: Female

DRUGS (2)
  1. ANTIBIOTICS [Suspect]
     Indication: HELICOBACTER INFECTION
     Dosage: UNK, UNK
     Route: 048
  2. PREVACID 24 HR [Suspect]
     Indication: ABDOMINAL DISCOMFORT
     Dosage: 60 MG, QD
     Route: 048
     Dates: end: 20120303

REACTIONS (7)
  - HAEMATOCHEZIA [None]
  - DYSGEUSIA [None]
  - OVERDOSE [None]
  - OFF LABEL USE [None]
  - ABDOMINAL DISTENSION [None]
  - FATIGUE [None]
  - PAIN [None]
